FAERS Safety Report 12740568 (Version 1)
Quarter: 2016Q3

REPORT INFORMATION
  Report Type: Report from Study
  Country: US (occurrence: US)
  Receive Date: 20160913
  Receipt Date: 20160913
  Transmission Date: 20161109
  Serious: Yes (Other)
  Sender: FDA-Public Use
  Company Number: US-AMGEN-USASL2016122442

PATIENT
  Age: 90 Year
  Sex: Female

DRUGS (1)
  1. KYPROLIS [Suspect]
     Active Substance: CARFILZOMIB
     Indication: PLASMA CELL MYELOMA
     Dosage: 27 MG/M2, ON DAY ONE, EIGHT, FIFTEEN, AND TWENTY TWO IN EVERY TWENTY EIGHT DAYS
     Route: 065

REACTIONS (3)
  - Activities of daily living impaired [Unknown]
  - Gait disturbance [Unknown]
  - Asthenia [Unknown]
